FAERS Safety Report 6784496-6 (Version None)
Quarter: 2010Q2

REPORT INFORMATION
  Report Type: 
  Country: None (occurrence: None)
  Receive Date: 20100622
  Receipt Date: 20100610
  Transmission Date: 20101027
  Serious: Yes (Other)
  Sender: FDA-Public Use
  Company Number: JP-PFIZER INC-2010073011

PATIENT

DRUGS (5)
  1. CABASER [Suspect]
     Dosage: 2 MG/DAY
  2. MENESIT [Concomitant]
  3. DOPS [Concomitant]
  4. MUCOSTA [Concomitant]
  5. GASMOTIN [Concomitant]

REACTIONS (1)
  - WHITE BLOOD CELL COUNT DECREASED [None]
